FAERS Safety Report 18506305 (Version 4)
Quarter: 2020Q4

REPORT INFORMATION
  Report Type: Spontaneous
  Country: US (occurrence: US)
  Receive Date: 20201116
  Receipt Date: 20201124
  Transmission Date: 20210114
  Serious: No
  Sender: FDA-Public Use
  Company Number: US-PFIZER INC-2020443967

PATIENT
  Age: 70 Year
  Sex: Female
  Weight: 81.63 kg

DRUGS (1)
  1. IBRANCE [Suspect]
     Active Substance: PALBOCICLIB
     Indication: BREAST CANCER STAGE IV
     Dosage: 100 MG, CYCLIC (1 TABLET ONCE DAILY FOR 3 WEEKS, THEN OFF FOR 1 WEEK)
     Dates: start: 202002

REACTIONS (3)
  - Poor quality product administered [Unknown]
  - Product packaging difficult to open [Unknown]
  - Product storage error [Unknown]
